FAERS Safety Report 13594008 (Version 1)
Quarter: 2017Q2

REPORT INFORMATION
  Report Type: Spontaneous
  Country: US (occurrence: US)
  Receive Date: 20170530
  Receipt Date: 20170530
  Transmission Date: 20170830
  Serious: No
  Sender: FDA-Public Use
  Company Number: PHEH2017US015846

PATIENT
  Age: 76 Year
  Sex: Male

DRUGS (1)
  1. VOTRIENT [Suspect]
     Active Substance: PAZOPANIB HYDROCHLORIDE
     Indication: SIDEROBLASTIC ANAEMIA
     Dosage: 600 MG, QD
     Route: 048
     Dates: start: 201702, end: 201705

REACTIONS (5)
  - Diarrhoea [Unknown]
  - Asthenia [Unknown]
  - Sinusitis [Unknown]
  - Fatigue [Unknown]
  - Haemorrhoids [Unknown]

NARRATIVE: CASE EVENT DATE: 201705
